FAERS Safety Report 4558752-6 (Version None)
Quarter: 2005Q1

REPORT INFORMATION
  Report Type: 
  Country: None (occurrence: None)
  Receive Date: 20050121
  Receipt Date: 20050110
  Transmission Date: 20050727
  Serious: Yes (Other)
  Sender: FDA-Public Use
  Company Number: US-JNJFOC-20050102403

PATIENT
  Age: 36 Year
  Sex: Male

DRUGS (2)
  1. TOPAMAX [Suspect]
  2. DILANTIN [Concomitant]

REACTIONS (5)
  - APHASIA [None]
  - BLINDNESS TRANSIENT [None]
  - CONFUSIONAL STATE [None]
  - CONVULSION [None]
  - INSOMNIA [None]
